FAERS Safety Report 7076272-4 (Version None)
Quarter: 2010Q4

REPORT INFORMATION
  Report Type: 
  Country: None (occurrence: None)
  Receive Date: 20101013
  Receipt Date: 20101013
  Transmission Date: 20110411
  Serious: Yes (Life-Threatening, Hospitalization)
  Sender: FDA-Public Use
  Company Number: None

PATIENT
  Age: 58 Year
  Sex: Female
  Weight: 85 kg

DRUGS (2)
  1. QUETIAPINE [Suspect]
     Indication: NEUROLEPTIC MALIGNANT SYNDROME
     Dosage: 400 MG AT BEDTIME PO
     Route: 048
     Dates: start: 20090223, end: 20100715
  2. QUETIAPINE [Suspect]
     Indication: NEUROLEPTIC MALIGNANT SYNDROME
     Dosage: 25 MG BID PO
     Route: 048
     Dates: start: 20090223, end: 20100215

REACTIONS (6)
  - DROOLING [None]
  - HYPERTENSION [None]
  - HYPOGLYCAEMIA [None]
  - HYPOTENSION [None]
  - LETHARGY [None]
  - MENTAL STATUS CHANGES [None]
